FAERS Safety Report 9803608 (Version 1)
Quarter: 2014Q1

REPORT INFORMATION
  Report Type: Spontaneous
  Country: US (occurrence: None)
  Receive Date: 20140107
  Receipt Date: 20140107
  Transmission Date: 20141002
  Serious: Yes (Hospitalization, Other)
  Sender: FDA-Public Use
  Company Number: None

PATIENT
  Age: 75 Year
  Sex: Female
  Weight: 57.3 kg

DRUGS (1)
  1. FORTEO 600MCG/2.4ML PEN [Suspect]
     Dosage: 20MCG, QD, SQ
     Dates: start: 20130320

REACTIONS (2)
  - Pain [None]
  - Nephrolithiasis [None]
